FAERS Safety Report 24570829 (Version 2)
Quarter: 2024Q4

REPORT INFORMATION
  Report Type: Report from Study
  Country: NL (occurrence: NL)
  Receive Date: 20241101
  Receipt Date: 20241106
  Transmission Date: 20250115
  Serious: Yes (Death, Life-Threatening)
  Sender: ABBVIE
  Company Number: NL-ABBVIE-5985914

PATIENT
  Sex: Male

DRUGS (4)
  1. CARBIDOPA\LEVODOPA [Suspect]
     Active Substance: CARBIDOPA\LEVODOPA
     Indication: Parkinson^s disease
     Dosage: MD 13.8 ML; CD 3.5 ML/H; ED 2.5 ML
     Route: 050
     Dates: start: 20240917, end: 20241101
  2. CARBIDOPA\LEVODOPA [Suspect]
     Active Substance: CARBIDOPA\LEVODOPA
     Dosage: MD 13.8 ML; CD 3.5 ML/H; ED 2.5 ML?REMAINS AT 16 HOURS
     Route: 050
     Dates: start: 20240620, end: 20240917
  3. CARBIDOPA\LEVODOPA [Suspect]
     Active Substance: CARBIDOPA\LEVODOPA
     Dosage: REMAINS AT 16 HOURS
     Route: 050
     Dates: start: 20201103
  4. RIVOTRIL [Concomitant]
     Active Substance: CLONAZEPAM
     Indication: Abnormal dreams

REACTIONS (2)
  - Parkinson^s disease [Fatal]
  - Terminal state [Not Recovered/Not Resolved]
